FAERS Safety Report 8333423-9 (Version None)
Quarter: 2012Q2

REPORT INFORMATION
  Report Type: 
  Country: None (occurrence: None)
  Receive Date: 20120503
  Receipt Date: 20120503
  Transmission Date: 20120825
  Serious: Yes (Hospitalization)
  Sender: FDA-Public Use
  Company Number: JP-PFIZER INC-2012082463

PATIENT
  Age: 10 Year
  Sex: Female
  Weight: 23.8 kg

DRUGS (17)
  1. TEMSIROLIMUS [Suspect]
     Dosage: 25 MG, WEEKLY
     Route: 042
     Dates: start: 20120124, end: 20120124
  2. MICAFUNGIN SODIUM [Concomitant]
     Indication: PROPHYLAXIS
  3. NEUTROGIN [Concomitant]
     Indication: ADVERSE EVENT
     Dosage: 100 UG, 1X/DAY
     Dates: start: 20111107, end: 20111109
  4. TOPOTECAN [Suspect]
     Indication: SYNOVIAL SARCOMA
     Dosage: 47 MG, 1X/DAY
     Route: 042
     Dates: start: 20111122, end: 20111126
  5. TOPOTECAN [Suspect]
     Dosage: 47 MG, 1X/DAY
     Route: 042
     Dates: start: 20120104
  6. MEROPENEM [Concomitant]
     Indication: ADVERSE EVENT
     Dosage: 0.5 G, 3X/DAY
     Route: 042
     Dates: start: 20111105, end: 20111110
  7. GLYCYRRHIZIN/GLYCINE/L-CYSTEINE HYDROCHLORIDE [Concomitant]
  8. BACTRIM [Concomitant]
     Indication: PROPHYLAXIS
     Dosage: UNK
     Route: 048
  9. LOPERAMIDE HCL [Concomitant]
     Indication: ADVERSE EVENT
  10. ATARAX [Concomitant]
     Dosage: 20 MG, 1X/DAY
     Route: 042
  11. TEMSIROLIMUS [Suspect]
     Dosage: 25 MG, UNK
     Dates: start: 20111115, end: 20111115
  12. VINORELBINE TARTRATE [Suspect]
     Indication: SYNOVIAL SARCOMA
     Dosage: 23 MG, 1X/DAY
     Route: 042
     Dates: start: 20111129, end: 20111129
  13. VINORELBINE TARTRATE [Suspect]
     Dosage: 23 MG, 1X/DAY
     Route: 042
     Dates: start: 20111206
  14. TEMOZOLOMIDE [Suspect]
     Indication: SYNOVIAL SARCOMA
     Dosage: 230 MG, 1X/DAY
     Route: 042
     Dates: start: 20111122, end: 20111126
  15. UROKINASE [Concomitant]
     Indication: PROPHYLAXIS
     Dosage: 6 X 10^4 UNIT/DAY
  16. TEMSIROLIMUS [Suspect]
     Indication: SYNOVIAL SARCOMA
     Dosage: 25 MG, UNK
     Route: 042
     Dates: start: 20111101, end: 20111101
  17. TEMSIROLIMUS [Suspect]
     Dosage: 0 MG, WEEKLY
     Dates: start: 20111108, end: 20111108

REACTIONS (4)
  - WHITE BLOOD CELL COUNT DECREASED [None]
  - BONE MARROW FAILURE [None]
  - ASPARTATE AMINOTRANSFERASE INCREASED [None]
  - ALANINE AMINOTRANSFERASE INCREASED [None]
